FAERS Safety Report 19238703 (Version 1)
Quarter: 2021Q2

REPORT INFORMATION
  Report Type: Spontaneous
  Country: NL (occurrence: NL)
  Receive Date: 20210510
  Receipt Date: 20210510
  Transmission Date: 20210717
  Serious: Yes (Other)
  Sender: FDA-Public Use
  Company Number: NL-PFIZER INC-2021462722

PATIENT
  Sex: Male

DRUGS (3)
  1. CLINDAMYCIN. [Suspect]
     Active Substance: CLINDAMYCIN
     Indication: INFECTION
     Dosage: 300 MG, 3X/DAY
     Dates: start: 20210331, end: 20210404
  2. OXYCODON [Concomitant]
     Active Substance: OXYCODONE
     Dosage: UNK
  3. FEXOFENADINE [Concomitant]
     Active Substance: FEXOFENADINE HYDROCHLORIDE
     Dosage: UNK

REACTIONS (2)
  - Haematochezia [Recovered/Resolved]
  - Diarrhoea [Unknown]
